FAERS Safety Report 7398835-9 (Version None)
Quarter: 2011Q2

REPORT INFORMATION
  Report Type: 
  Country: None (occurrence: None)
  Receive Date: 20110404
  Receipt Date: 20110404
  Transmission Date: 20111010
  Serious: Yes (Other)
  Sender: FDA-Public Use
  Company Number: None

PATIENT
  Age: 56 Year
  Sex: Female
  Weight: 65.7716 kg

DRUGS (1)
  1. BONIVA [Suspect]
     Indication: OSTEOPENIA
     Dosage: Q. 3 MONTHS IV
     Route: 042
     Dates: start: 20100101, end: 20110331

REACTIONS (8)
  - BACK PAIN [None]
  - EYE PAIN [None]
  - FATIGUE [None]
  - BONE PAIN [None]
  - ABDOMINAL PAIN UPPER [None]
  - PAIN IN JAW [None]
  - ABDOMINAL DISCOMFORT [None]
  - MALAISE [None]
